FAERS Safety Report 15060117 (Version 1)
Quarter: 2018Q2

REPORT INFORMATION
  Report Type: Spontaneous
  Country: US (occurrence: US)
  Receive Date: 20180625
  Receipt Date: 20180625
  Transmission Date: 20180711
  Serious: No
  Sender: FDA-Public Use
  Company Number: US-BLUE EARTH DIAGNOSTICS LIMITED-BED-000005-2018

PATIENT
  Sex: Male

DRUGS (1)
  1. AXUMIN [Suspect]
     Active Substance: FLUCICLOVINE F-18
     Indication: ILL-DEFINED DISORDER
     Dosage: 11.5 UNKNOWN, UNK
     Route: 042
     Dates: start: 20180309

REACTIONS (5)
  - Conjunctivitis [Unknown]
  - Ocular hyperaemia [Unknown]
  - Eye discharge [Unknown]
  - Eye irritation [Unknown]
  - Eye swelling [Unknown]
